FAERS Safety Report 4736246-2 (Version None)
Quarter: 2005Q3

REPORT INFORMATION
  Report Type: 
  Country: None (occurrence: None)
  Receive Date: 20050804
  Receipt Date: 20050804
  Transmission Date: 20060218
  Serious: Yes (Hospitalization, Other)
  Sender: FDA-Public Use
  Company Number: None

PATIENT
  Sex: Female
  Weight: 92 kg

DRUGS (4)
  1. FLUOROURACIL [Suspect]
     Indication: ANAL CANCER
     Dosage: SEE IMAGE
     Route: 042
     Dates: start: 20050629, end: 20050703
  2. FLUOROURACIL [Suspect]
     Indication: ANAL CANCER
     Dosage: SEE IMAGE
     Route: 042
     Dates: start: 20050628
  3. MITOMYCIN [Suspect]
     Dosage: SEE IMAGE
     Dates: start: 20050629, end: 20050629
  4. RADIATION [Suspect]
     Dosage: SEE IMAGE

REACTIONS (2)
  - DYSURIA [None]
  - RADIATION SKIN INJURY [None]
